FAERS Safety Report 5709837 (Version 1)
Quarter: 2020Q3

REPORT INFORMATION
  Report Type: Spontaneous
  Country: FI (occurrence: None)
  Receive Date: 20041228
  Receipt Date: 20041228
  Transmission Date: 20201104
  Serious: Yes (Death, Hospitalization)
  Sender: FDA-Public Use
  Company Number: WAES 0412FIN00009

PATIENT
  Age: 86 Year
  Sex: Female

DRUGS (13)
  1. ASPIRIN. [Suspect]
     Active Substance: ASPIRIN
     Indication: CEREBROVASCULAR ACCIDENT PROPHYLAXIS
     Dosage: 100 MG/DAILY/PO
     Route: 048
  2. METOPROLOL. [Concomitant]
     Active Substance: METOPROLOL
  3. VIOXX [Suspect]
     Active Substance: ROFECOXIB
     Indication: ARTHRALGIA
     Dosage: PO
     Route: 048
     Dates: end: 200410
  4. CLOPIDOGREL BISULFATE. [Concomitant]
     Active Substance: CLOPIDOGREL BISULFATE
  5. ISOSORBIDE MONONITRATE. [Concomitant]
     Active Substance: ISOSORBIDE MONONITRATE
  6. GALANTAMINE HYDROBROMIDE [Concomitant]
  7. ALLOPURINOL. [Concomitant]
     Active Substance: ALLOPURINOL
  8. FUROSEMIDE. [Concomitant]
     Active Substance: FUROSEMIDE
  9. ETORICOXIB. [Suspect]
     Active Substance: ETORICOXIB
     Indication: ARTHRALGIA
     Dosage: 60 MG/DAILY/PO
     Route: 048
     Dates: start: 20041008, end: 200411
  10. ZOCOR [Concomitant]
     Active Substance: SIMVASTATIN
  11. ACETAMINOPHEN. [Concomitant]
     Active Substance: ACETAMINOPHEN
  12. ASPIRIN. [Suspect]
     Active Substance: ASPIRIN
     Indication: CORONARY ARTERY DISEASE
     Dosage: 100 MG/DAILY/PO
     Route: 048
  13. ENALAPRIL MALEATE. [Concomitant]
     Active Substance: ENALAPRIL MALEATE

REACTIONS (3)
  - Duodenal ulcer perforation [None]
  - Pneumonia aspiration [None]
  - Myocardial infarction [None]

NARRATIVE: CASE EVENT DATE: 20041119
